FAERS Safety Report 22282994 (Version 2)
Quarter: 2023Q2

REPORT INFORMATION
  Report Type: Spontaneous
  Country: FR (occurrence: FR)
  Receive Date: 20230504
  Receipt Date: 20230518
  Transmission Date: 20230722
  Serious: Yes (Other)
  Sender: FDA-Public Use
  Company Number: FR-TEVA-2023-FR-2883367

PATIENT
  Age: 69 Year
  Sex: Male

DRUGS (2)
  1. SUNITINIB [Suspect]
     Active Substance: SUNITINIB
     Indication: Clear cell renal cell carcinoma
     Route: 065
     Dates: start: 2009, end: 2013
  2. TREBANANIB [Suspect]
     Active Substance: TREBANANIB
     Indication: Clear cell renal cell carcinoma
     Route: 065
     Dates: start: 2009, end: 2012

REACTIONS (2)
  - Drug ineffective [Unknown]
  - Toxicity to various agents [Unknown]
